FAERS Safety Report 19491139 (Version 4)
Quarter: 2021Q4

REPORT INFORMATION
  Report Type: Report from Study
  Country: IL (occurrence: None)
  Receive Date: 20210705
  Receipt Date: 20211124
  Transmission Date: 20220303
  Serious: Yes (Other)
  Sender: FDA-Public Use
  Company Number: IL-MERCK HEALTHCARE KGAA-9248914

PATIENT
  Age: 62 Year
  Sex: Female

DRUGS (1)
  1. REBIF [Suspect]
     Active Substance: INTERFERON BETA-1A
     Indication: Product used for unknown indication
     Route: 058
     Dates: start: 20111129

REACTIONS (4)
  - Skin cancer [Recovering/Resolving]
  - Skin wound [Unknown]
  - Precancerous skin lesion [Recovering/Resolving]
  - Magnetic resonance imaging breast abnormal [Unknown]

NARRATIVE: CASE EVENT DATE: 20210601
